FAERS Safety Report 9344565 (Version 2)
Quarter: 2013Q2

REPORT INFORMATION
  Report Type: Spontaneous
  Country: US (occurrence: US)
  Receive Date: 20130612
  Receipt Date: 20130617
  Transmission Date: 20140414
  Serious: Yes (Other)
  Sender: FDA-Public Use
  Company Number: US-PFIZER INC-2013173184

PATIENT
  Sex: Male

DRUGS (2)
  1. CORTEF [Suspect]
     Indication: ADDISON^S DISEASE
     Dosage: 60 MG
  2. CORTEF [Suspect]
     Dosage: 40 MG

REACTIONS (7)
  - Adrenocortical insufficiency acute [Unknown]
  - Fatigue [Unknown]
  - Depression [Unknown]
  - Weight decreased [Unknown]
  - Disturbance in attention [Unknown]
  - Bone density decreased [Unknown]
  - Anxiety [Unknown]
